FAERS Safety Report 5367709-7 (Version None)
Quarter: 2007Q2

REPORT INFORMATION
  Report Type: 
  Country: None (occurrence: None)
  Receive Date: 20070622
  Receipt Date: 20070326
  Transmission Date: 20071010
  Serious: No
  Sender: FDA-Public Use
  Company Number: US-ASTRAZENECA-2007UW06058

PATIENT
  Age: 17 Month
  Sex: Male
  Weight: 11.8 kg

DRUGS (4)
  1. PULMICORT RESPULES [Suspect]
     Indication: BRONCHITIS
     Route: 055
     Dates: start: 20070323
  2. OMNICEF [Concomitant]
  3. CERON [Concomitant]
  4. PREDNISOLONE [Concomitant]
     Route: 048

REACTIONS (2)
  - MEDICATION ERROR [None]
  - VOMITING [None]
